FAERS Safety Report 18347305 (Version 2)
Quarter: 2020Q4

REPORT INFORMATION
  Report Type: Report from Study
  Country: CN (occurrence: CN)
  Receive Date: 20201005
  Receipt Date: 20201013
  Transmission Date: 20210114
  Serious: Yes (Hospitalization)
  Sender: FDA-Public Use
  Company Number: CN-ROCHE-2686192

PATIENT
  Age: 74 Year
  Sex: Male
  Weight: 74 kg

DRUGS (29)
  1. PLACEBO [Suspect]
     Active Substance: UNSPECIFIED INGREDIENT
     Indication: DIFFUSE LARGE B-CELL LYMPHOMA
     Dosage: DATE OF MOST RECENT DOSE OF PLACEBO PRIOR TO SAE ONSET ON 14/AUG/2020
     Route: 042
     Dates: start: 20200814
  2. RITUXIMAB. [Suspect]
     Active Substance: RITUXIMAB
     Indication: DIFFUSE LARGE B-CELL LYMPHOMA
     Dosage: DATE OF MOST RECENT DOSE 720 MG OF RITUXIMAB ADMINISTERED PRIOR TO SAE ONSET ON 13/AUG/2020
     Route: 042
     Dates: start: 20200813
  3. PALONOSETRON HYDROCHLORIDE. [Concomitant]
     Active Substance: PALONOSETRON HYDROCHLORIDE
     Route: 042
     Dates: start: 20200814, end: 20200817
  4. DOMPERIDONE [Concomitant]
     Active Substance: DOMPERIDONE
     Route: 048
     Dates: start: 20200816, end: 20200826
  5. MULTIPLE ELECTROLYTES [Concomitant]
     Route: 042
     Dates: start: 20200810, end: 20200818
  6. AMBROXOL HYDROCHLORIDE [Concomitant]
     Active Substance: AMBROXOL HYDROCHLORIDE
     Route: 042
     Dates: start: 20200821, end: 20200826
  7. DOXORUBICIN [Suspect]
     Active Substance: DOXORUBICIN
     Indication: DIFFUSE LARGE B-CELL LYMPHOMA
     Dosage: DATE OF MOST RECENT DOSE 96 MG OF DOXORUBICIN ADMINISTERED PRIOR TO SAE ONSET ON 14/AUG/2020.
     Route: 042
     Dates: start: 20200814
  8. CYCLOPHOSPHAMIDE. [Suspect]
     Active Substance: CYCLOPHOSPHAMIDE
     Indication: DIFFUSE LARGE B-CELL LYMPHOMA
     Dosage: DATE OF MOST RECENT DOSE 1440 MG OF CYCLOPHOSPHAMIDE ADMINISTERED PRIOR TO SAE ONSET ON 14/AUG/2020
     Route: 042
     Dates: start: 20200814
  9. PREDNISONE. [Suspect]
     Active Substance: PREDNISONE
     Indication: DIFFUSE LARGE B-CELL LYMPHOMA
     Dosage: FREQUENCY: ON DAYS 1-5 OF EVERY 21-DAY CYCLE FOR 6 CYCLES.?DATE OF MOST RECENT DOSE OF PREDNISONE AD
     Route: 048
     Dates: start: 20200813
  10. SODIUM BICARBONATE. [Concomitant]
     Active Substance: SODIUM BICARBONATE
     Route: 042
     Dates: start: 20200810, end: 20200818
  11. OMEPRAZOLE SODIUM [Concomitant]
     Active Substance: OMEPRAZOLE SODIUM
     Route: 042
     Dates: start: 20200810, end: 20200818
  12. METHYLPREDNISOLONE SODIUM SUCCINATE. [Concomitant]
     Active Substance: METHYLPREDNISOLONE SODIUM SUCCINATE
     Route: 042
     Dates: start: 20200813, end: 20200813
  13. MESNA. [Concomitant]
     Active Substance: MESNA
     Route: 042
     Dates: start: 20200814, end: 20200814
  14. CALCIUM CARBONATE;VITAMIN D3 [Concomitant]
     Route: 048
     Dates: start: 20200810, end: 20200826
  15. POTASSIUM ASPARTATE AND MAGNESIUM ASPARTATE [Concomitant]
     Route: 042
     Dates: start: 20200810, end: 20200818
  16. PIPERACILLIN AND TAZOBACTAM [Concomitant]
     Active Substance: PIPERACILLIN SODIUM\TAZOBACTAM SODIUM
     Route: 042
     Dates: start: 20200811, end: 20200826
  17. DEXAMETHASONE SODIUM PHOSPHATE. [Concomitant]
     Active Substance: DEXAMETHASONE SODIUM PHOSPHATE
     Route: 042
     Dates: start: 20200813, end: 20200813
  18. FUROSEMIDE. [Concomitant]
     Active Substance: FUROSEMIDE
     Route: 042
     Dates: start: 20200815, end: 20200816
  19. COMPOUND DIGESTIVE ENZYME CAPSULES [Concomitant]
     Route: 048
     Dates: start: 20200816, end: 20200826
  20. DIPHENHYDRAMINE HYDROCHLORIDE. [Concomitant]
     Active Substance: DIPHENHYDRAMINE HYDROCHLORIDE
     Indication: ANTIALLERGIC THERAPY
     Route: 030
     Dates: start: 20200819, end: 20200826
  21. ESTAZOLAM. [Concomitant]
     Active Substance: ESTAZOLAM
     Route: 048
     Dates: start: 20200819, end: 20200826
  22. BUDESONIDE. [Concomitant]
     Active Substance: BUDESONIDE
     Route: 042
     Dates: start: 20200821, end: 20200825
  23. POLATUZUMAB VEDOTIN. [Suspect]
     Active Substance: POLATUZUMAB VEDOTIN
     Indication: DIFFUSE LARGE B-CELL LYMPHOMA
     Dosage: MOST RECENT DOSE
     Route: 042
     Dates: start: 20200814
  24. COMPOUND DIISOPROPYLAMINE DICHLOROACETATE [Concomitant]
     Active Substance: DIISOPROPYLAMMONIUM DICHLOROACETATE
     Route: 042
     Dates: start: 20200810, end: 20200818
  25. DIPHENHYDRAMINE HYDROCHLORIDE. [Concomitant]
     Active Substance: DIPHENHYDRAMINE HYDROCHLORIDE
     Route: 037
     Dates: start: 20200813, end: 20200813
  26. NIFEDIPINE. [Concomitant]
     Active Substance: NIFEDIPINE
     Indication: HYPOTENSION
     Route: 060
     Dates: start: 20200813, end: 20200814
  27. LACTULOSE. [Concomitant]
     Active Substance: LACTULOSE
     Route: 048
     Dates: start: 20200817, end: 20200820
  28. PREDNISONE ACETATE [Concomitant]
     Active Substance: PREDNISONE ACETATE
     Route: 048
     Dates: start: 20200810, end: 20200812
  29. DEXRAZOXANE. [Concomitant]
     Active Substance: DEXRAZOXANE
     Route: 042
     Dates: start: 20200814, end: 20200814

REACTIONS (1)
  - Myelosuppression [Recovered/Resolved]

NARRATIVE: CASE EVENT DATE: 20200820
